FAERS Safety Report 6474177-0 (Version None)
Quarter: 2009Q4

REPORT INFORMATION
  Report Type: 
  Country: None (occurrence: None)
  Receive Date: 20091204
  Receipt Date: 20091123
  Transmission Date: 20100525
  Serious: Yes (Other)
  Sender: FDA-Public Use
  Company Number: PHHY2009RU51291

PATIENT
  Age: 70 Year
  Sex: Female

DRUGS (3)
  1. ACLASTA [Suspect]
     Indication: OSTEOPOROSIS
     Dosage: 5 MG, UNK
     Route: 042
     Dates: start: 20091120
  2. ANTIDEPRESSANTS [Concomitant]
  3. CALCIUM D3 [Concomitant]
     Dosage: 2 TABLETS DAILY

REACTIONS (2)
  - CARDIAC FIBRILLATION [None]
  - NAUSEA [None]
